FAERS Safety Report 9058421 (Version 1)
Quarter: 2013Q1

REPORT INFORMATION
  Report Type: Spontaneous
  Country: US (occurrence: US)
  Receive Date: 20130211
  Receipt Date: 20130211
  Transmission Date: 20140127
  Serious: Yes (Other)
  Sender: FDA-Public Use
  Company Number: US-JNJFOC-20130204011

PATIENT
  Sex: 0

DRUGS (9)
  1. DOXORUBICIN [Suspect]
     Indication: TRANSITIONAL CELL CARCINOMA
     Dosage: OVER 15 MINUTES OVER 12-18 HOURS INFUSED THROUGH A CENTRAL LINE ON DAY 3 ONLY
     Route: 042
  2. DOXORUBICIN [Suspect]
     Indication: TRANSITIONAL CELL CARCINOMA
     Dosage: ON DAY 3
     Route: 042
  3. IFOSFAMIDE [Suspect]
     Indication: TRANSITIONAL CELL CARCINOMA
     Dosage: INFUSED OVER 3 HOURS DAILY ON DAYS 1-4
     Route: 041
  4. IFOSFAMIDE [Suspect]
     Indication: TRANSITIONAL CELL CARCINOMA
     Route: 041
  5. MESNA [Suspect]
     Indication: TRANSITIONAL CELL CARCINOMA
     Dosage: DAYS 1 THROUGH 4
     Route: 041
  6. MESNA [Suspect]
     Indication: TRANSITIONAL CELL CARCINOMA
     Dosage: INFUSED OVER 15 MINUTES AT HOURS ZERO, 3, 7, AND 11 DAILY ON DAYS 1-4
     Route: 041
  7. GEMCITABINE [Suspect]
     Indication: TRANSITIONAL CELL CARCINOMA
     Dosage: ON DAYS 2 TO 4
     Route: 041
  8. GEMCITABINE [Suspect]
     Indication: TRANSITIONAL CELL CARCINOMA
     Dosage: OVER 30 MINUTES ON DAYS 2 AND 4 ONLY
     Route: 041
  9. SODIUM ACETATE [Concomitant]
     Indication: FLUID REPLACEMENT
     Dosage: FREQUENT INFUSION
     Route: 065

REACTIONS (3)
  - Thrombosis [Unknown]
  - Embolism [Unknown]
  - Off label use [Unknown]
